FAERS Safety Report 10045095 (Version 1)
Quarter: 2014Q1

REPORT INFORMATION
  Report Type: Spontaneous
  Country: GB (occurrence: GB)
  Receive Date: 20140328
  Receipt Date: 20140328
  Transmission Date: 20141002
  Serious: Yes (Other)
  Sender: FDA-Public Use
  Company Number: GB-JNJFOC-20140316581

PATIENT
  Age: 37 Year
  Sex: Male
  Weight: 120 kg

DRUGS (6)
  1. REMICADE [Suspect]
     Indication: PSORIATIC ARTHROPATHY
     Dosage: 600 MG IN 250 ML N/SALINE OVER 2 HOURS AT WEEK 0, 2, 6 AND THEN 8 WEEKLY
     Route: 042
     Dates: start: 20140311, end: 20140311
  2. REMICADE [Suspect]
     Indication: PSORIATIC ARTHROPATHY
     Dosage: 600 MG IN 250 ML N/SALINE OVER 2 HOURS AT WEEK 0, 2, 6 AND THEN 8 WEEKLY
     Route: 042
     Dates: start: 20140225, end: 20140225
  3. FOLIC ACID [Concomitant]
     Route: 065
  4. METHOTREXATE [Concomitant]
     Route: 065
  5. SOLPADOL [Concomitant]
     Dosage: 1-2 TABLETS TAKEN ONCE EVERY 4-6 HOURS
     Route: 065
  6. HYDROCORTISONE [Concomitant]
     Indication: PREMEDICATION
     Route: 042

REACTIONS (8)
  - Feeling hot [Recovered/Resolved]
  - Infusion related reaction [Recovered/Resolved]
  - Hyperhidrosis [Recovered/Resolved]
  - Nausea [Recovered/Resolved]
  - Vomiting [Recovered/Resolved]
  - Rash [Recovered/Resolved]
  - Malaise [Recovered/Resolved]
  - Tachycardia [Recovered/Resolved]
